FAERS Safety Report 11112248 (Version 1)
Quarter: 2015Q2

REPORT INFORMATION
  Report Type: Spontaneous
  Country: US (occurrence: None)
  Receive Date: 20150513
  Receipt Date: 20150513
  Transmission Date: 20150821
  Serious: No
  Sender: FDA-Public Use
  Company Number: None

PATIENT
  Sex: Male

DRUGS (1)
  1. INLYTA [Suspect]
     Active Substance: AXITINIB
     Indication: MALIGNANT URINARY TRACT NEOPLASM
     Route: 048
     Dates: start: 20150429

REACTIONS (2)
  - Musculoskeletal chest pain [None]
  - Chest pain [None]
